FAERS Safety Report 24762558 (Version 3)
Quarter: 2025Q1

REPORT INFORMATION
  Report Type: Spontaneous
  Country: FR (occurrence: FR)
  Receive Date: 20241221
  Receipt Date: 20250117
  Transmission Date: 20250409
  Serious: Yes (Death, Other)
  Sender: ALEXION PHARMACEUTICALS
  Company Number: FR-ASTRAZENECA-202412EEA015057FR

PATIENT
  Age: 35 Year

DRUGS (6)
  1. LYNPARZA [Suspect]
     Active Substance: OLAPARIB
     Indication: Metastatic malignant melanoma
     Route: 065
  2. LYNPARZA [Suspect]
     Active Substance: OLAPARIB
     Indication: BRAF V600E mutation positive
     Route: 065
  3. LYNPARZA [Suspect]
     Active Substance: OLAPARIB
     Route: 065
  4. LYNPARZA [Suspect]
     Active Substance: OLAPARIB
     Route: 065
  5. DABRAFENIB\TRAMETINIB [Suspect]
     Active Substance: DABRAFENIB\TRAMETINIB
     Indication: Metastatic malignant melanoma
     Route: 065
  6. DABRAFENIB\TRAMETINIB [Suspect]
     Active Substance: DABRAFENIB\TRAMETINIB
     Indication: BRAF V600E mutation positive
     Route: 065

REACTIONS (3)
  - Malignant neoplasm progression [Fatal]
  - Drug resistance [Fatal]
  - Off label use [Unknown]
